FAERS Safety Report 7040247-1 (Version None)
Quarter: 2010Q4

REPORT INFORMATION
  Report Type: 
  Country: None (occurrence: None)
  Receive Date: 20101012
  Receipt Date: 20101006
  Transmission Date: 20110411
  Serious: Yes (Hospitalization)
  Sender: FDA-Public Use
  Company Number: FR-WYE-G06773010

PATIENT
  Sex: Female

DRUGS (6)
  1. EFFEXOR [Suspect]
     Dosage: UNKNOWN
     Route: 048
  2. JANUVIA [Concomitant]
     Indication: TYPE 2 DIABETES MELLITUS
     Dosage: UNKNOWN
     Route: 048
  3. DEPAMIDE [Interacting]
     Dosage: UNKNOWN
     Route: 048
  4. DIAMICRON [Concomitant]
     Indication: TYPE 2 DIABETES MELLITUS
     Dosage: UNKNOWN
     Route: 048
  5. MEPRONIZINE [Interacting]
     Indication: INSOMNIA
     Dosage: UNKNOWN
     Route: 048
  6. SERESTA [Interacting]
     Dosage: UNKNOWN
     Route: 048

REACTIONS (10)
  - DEPRESSED MOOD [None]
  - DISEASE PRODROMAL STAGE [None]
  - DRUG INTERACTION [None]
  - FALL [None]
  - LOSS OF CONSCIOUSNESS [None]
  - MALAISE [None]
  - MUSCULOSKELETAL PAIN [None]
  - NECK PAIN [None]
  - OVERDOSE [None]
  - PSYCHOMOTOR RETARDATION [None]
